FAERS Safety Report 9504849 (Version 4)
Quarter: 2013Q4

REPORT INFORMATION
  Report Type: Report from Study
  Country: BE (occurrence: BE)
  Receive Date: 20130906
  Receipt Date: 20131018
  Transmission Date: 20140711
  Serious: Yes (Death, Hospitalization)
  Sender: FDA-Public Use
  Company Number: BE-ROCHE-1256585

PATIENT
  Age: 79 Year
  Sex: Male
  Weight: 62 kg

DRUGS (14)
  1. RITUXIMAB [Suspect]
     Indication: DIFFUSE LARGE B-CELL LYMPHOMA
     Dosage: LAST DOSE PRIOR TO SAE: 19/JUL/2013, DOSE: 640 MG RECEIVED
     Route: 042
     Dates: start: 20130719
  2. METHYLPREDNISOLONE [Suspect]
     Indication: DIFFUSE LARGE B-CELL LYMPHOMA
     Dosage: DATE OF LAST DOSE PRIOR TO SAE WAS 26/JUL/2013.
     Route: 042
     Dates: start: 20130719
  3. DOXORUBICINE [Suspect]
     Indication: DIFFUSE LARGE B-CELL LYMPHOMA
     Dosage: LAST DOSE PRIOR TO SAE: 19/JUL/2013
     Route: 042
     Dates: start: 20130719
  4. CYCLOPHOSPHAMIDE [Suspect]
     Indication: DIFFUSE LARGE B-CELL LYMPHOMA
     Route: 042
     Dates: start: 20130719
  5. VINCRISTINE [Suspect]
     Indication: DIFFUSE LARGE B-CELL LYMPHOMA
     Route: 065
  6. EMCONCOR [Concomitant]
     Dosage: DAILY
     Route: 065
     Dates: end: 20130819
  7. CLEXANE [Concomitant]
     Dosage: 60 MILLION UNITS PER METER
     Route: 065
     Dates: start: 20130719, end: 20130819
  8. PANTOMED (BELGIUM) [Concomitant]
     Dosage: DAILY
     Route: 065
     Dates: start: 20130719, end: 20130819
  9. DOMINAL (BELGIUM) [Concomitant]
     Route: 065
     Dates: start: 20130719, end: 20130819
  10. BURINEX [Concomitant]
     Dosage: DAILY
     Route: 065
     Dates: start: 20130719, end: 20130819
  11. BACTRIM FORTE [Concomitant]
     Route: 065
     Dates: start: 20130719, end: 20130819
  12. ACICLOVIR [Concomitant]
     Route: 065
     Dates: start: 20130719, end: 20130819
  13. TOTALIP [Concomitant]
     Dosage: DAILY
     Route: 065
     Dates: end: 20130819
  14. BETAHISTINE [Concomitant]
     Dosage: DAILY
     Route: 065
     Dates: end: 20130819

REACTIONS (3)
  - Atelectasis [Fatal]
  - Septic shock [Fatal]
  - Febrile neutropenia [Fatal]
